FAERS Safety Report 8816249 (Version 2)
Quarter: 2013Q4

REPORT INFORMATION
  Report Type: Spontaneous
  Country: BG (occurrence: BG)
  Receive Date: 20120930
  Receipt Date: 20131126
  Transmission Date: 20140711
  Serious: Yes (Life-Threatening, Hospitalization, Other)
  Sender: FDA-Public Use
  Company Number: BG-009507513-1209BGR010721

PATIENT
  Age: 5 Year
  Sex: Male

DRUGS (2)
  1. SINGULAIR [Suspect]
     Indication: ASTHMA
     Dosage: 4 MG, UNK
     Route: 048
     Dates: start: 2010, end: 201207
  2. PULMICORT [Concomitant]
     Indication: ASTHMA
     Dosage: FORMULATION: INHALER; ROUTE OF ADMINISTARTION: INHALATION
     Route: 055
     Dates: start: 201201

REACTIONS (3)
  - Leukaemia [Recovering/Resolving]
  - Bronchospasm [Unknown]
  - Asthenia [Unknown]
